FAERS Safety Report 8627650 (Version 6)
Quarter: 2013Q3

REPORT INFORMATION
  Report Type: Spontaneous
  Country: US (occurrence: US)
  Receive Date: 20120621
  Receipt Date: 20130924
  Transmission Date: 20140515
  Serious: Yes (Hospitalization)
  Sender: FDA-Public Use
  Company Number: US-US-EMD SERONO, INC.-7140354

PATIENT
  Age: 56 Year
  Sex: Male
  Weight: 99 kg

DRUGS (7)
  1. REBIF [Suspect]
     Indication: MULTIPLE SCLEROSIS
     Route: 058
     Dates: start: 20090918, end: 201204
  2. REBIF [Suspect]
     Route: 058
     Dates: start: 201205
  3. ASPIRIN                            /00002701/ [Concomitant]
     Indication: PREMEDICATION
  4. TOPROL [Concomitant]
     Indication: PRODUCT USED FOR UNKNOWN INDICATION
  5. FLOMAX                             /00889901/ [Concomitant]
     Indication: PRODUCT USED FOR UNKNOWN INDICATION
  6. VESICARE                           /01735901/ [Concomitant]
     Indication: PRODUCT USED FOR UNKNOWN INDICATION
  7. PROVIGIL [Concomitant]
     Indication: PRODUCT USED FOR UNKNOWN INDICATION

REACTIONS (6)
  - Cystitis [Recovered/Resolved]
  - Urosepsis [Recovered/Resolved]
  - Urinary retention [Unknown]
  - Nuclear magnetic resonance imaging brain abnormal [Unknown]
  - Muscle spasticity [Unknown]
  - Hepatic enzyme increased [Recovered/Resolved]
